FAERS Safety Report 8815748 (Version 1)
Quarter: 2012Q4

REPORT INFORMATION
  Report Type: 
  Country: US (occurrence: US)
  Receive Date: 20120928
  Receipt Date: 20120928
  Transmission Date: 20130627
  Serious: No
  Sender: FDA-Public Use
  Company Number: US-009507513-1207USA008932

PATIENT
  Sex: Female

DRUGS (17)
  1. FOSAMAX [Suspect]
     Route: 048
  2. ASPIRIN [Concomitant]
     Dosage: 81 mg, qd
  3. CALCIUM (UNSPECIFIED) (+) VITAMIN D (UNSPECIFIED) [Concomitant]
     Dosage: 400 mg, qd
  4. CLONAZEPAM [Concomitant]
     Indication: ANXIETY
     Dosage: 0.5 mg, prn
     Route: 048
  5. COLESTIPOL HYDROCHLORIDE [Concomitant]
     Dosage: 2 DF, in the morning and evening
     Dates: start: 20111215
  6. COLESTIPOL HYDROCHLORIDE [Concomitant]
     Dosage: 2 g, qpm
  7. GABAPENTIN [Concomitant]
     Dosage: 300 mg, qam
  8. GABAPENTIN [Concomitant]
     Dosage: 600 mg, qpm
  9. LANSOPRAZOLE [Concomitant]
     Dosage: 30 mg, qd
  10. LEVOTHYROXINE SODIUM [Concomitant]
     Dosage: 0.025 mg, qd
     Route: 048
  11. LISINOPRIL [Concomitant]
     Dosage: 40 mg, qd
  12. LOVASTATIN [Concomitant]
     Dosage: 20 mg, qd
     Route: 048
  13. LUMIGAN [Concomitant]
     Dosage: 1 drop/eye, qd
  14. SERTRALINE HYDROCHLORIDE [Concomitant]
     Dosage: 100 mg, qd
     Dates: start: 20120628
  15. SEROQUEL [Suspect]
  16. ACTONEL [Suspect]
  17. DONEPEZIL HYDROCHLORIDE [Suspect]

REACTIONS (3)
  - Abdominal discomfort [Unknown]
  - Insomnia [Recovered/Resolved]
  - Nightmare [Recovered/Resolved]
